FAERS Safety Report 7226390-2 (Version None)
Quarter: 2011Q1

REPORT INFORMATION
  Report Type: 
  Country: None (occurrence: None)
  Receive Date: 20110114
  Receipt Date: 20110111
  Transmission Date: 20110831
  Serious: Yes (Death, Other)
  Sender: FDA-Public Use
  Company Number: PHHY2010JP59421

PATIENT
  Sex: Female
  Weight: 34 kg

DRUGS (2)
  1. ALISKIREN [Suspect]
     Dosage: 150 MG, QD
     Route: 048
     Dates: start: 20100108, end: 20100422
  2. OLMETEC [Concomitant]
     Indication: HYPERTENSION
     Dosage: 5 MG, UNK
     Route: 048
     Dates: start: 20091224, end: 20100107

REACTIONS (2)
  - BLOOD PRESSURE SYSTOLIC INCREASED [None]
  - MULTIPLE MYELOMA [None]
